FAERS Safety Report 12503150 (Version 1)
Quarter: 2016Q2

REPORT INFORMATION
  Report Type: Spontaneous
  Country: GB (occurrence: None)
  Receive Date: 20160627
  Receipt Date: 20160627
  Transmission Date: 20160815
  Serious: Yes (Disabling)
  Sender: FDA-Public Use
  Company Number: None

PATIENT
  Age: 48 Year
  Sex: Female
  Weight: 61.69 kg

DRUGS (2)
  1. OMEPRAZOLE, 20 MG [Suspect]
     Active Substance: OMEPRAZOLE
     Indication: REFLUX LARYNGITIS
     Dosage: 2 TABLET(S) TWICE A DAY TAKEN BY MOUTH
     Route: 048
     Dates: start: 20090601
  2. MAGNESIUM GLYCINATE [Concomitant]
     Active Substance: MAGNESIUM GLYCINATE

REACTIONS (8)
  - Paraesthesia [None]
  - Asthenia [None]
  - Hypoaesthesia [None]
  - Palpitations [None]
  - Ventricular extrasystoles [None]
  - Fatigue [None]
  - Blepharospasm [None]
  - Blood pressure increased [None]
